FAERS Safety Report 9011115 (Version 2)
Quarter: 2013Q4

REPORT INFORMATION
  Report Type: Report from Study
  Country: MX (occurrence: MX)
  Receive Date: 20130109
  Receipt Date: 20131107
  Transmission Date: 20140711
  Serious: Yes (Other)
  Sender: FDA-Public Use
  Company Number: PHHY2013MX001401

PATIENT
  Age: 75 Year
  Sex: Female

DRUGS (2)
  1. DIOVAN [Suspect]
     Indication: HYPERTENSION
     Dosage: 1 DF(160MG), DAILY
     Route: 048
     Dates: end: 201303
  2. JANUMET [Concomitant]
     Indication: DIABETES MELLITUS
     Dosage: 2 DF, UNK
     Dates: start: 2003

REACTIONS (1)
  - Hip fracture [Recovering/Resolving]
